FAERS Safety Report 6748469-1 (Version None)
Quarter: 2010Q2

REPORT INFORMATION
  Report Type: 
  Country: None (occurrence: None)
  Receive Date: 20100527
  Receipt Date: 20100527
  Transmission Date: 20101027
  Serious: Yes (Other)
  Sender: FDA-Public Use
  Company Number: None

PATIENT
  Sex: Male
  Weight: 85.7298 kg

DRUGS (2)
  1. AVODART [Suspect]
     Indication: MICTURITION DISORDER
     Dosage: 0.5 MG 1 X DAILY
     Dates: start: 20100504, end: 20100511
  2. AVODART [Suspect]
     Indication: PROSTATOMEGALY
     Dosage: 0.5 MG 1 X DAILY
     Dates: start: 20100504, end: 20100511

REACTIONS (1)
  - CONSTIPATION [None]
